FAERS Safety Report 24711138 (Version 1)
Quarter: 2024Q4

REPORT INFORMATION
  Report Type: Spontaneous
  Country: US (occurrence: US)
  Receive Date: 20241209
  Receipt Date: 20241209
  Transmission Date: 20250114
  Serious: Yes (Other)
  Sender: MYLAN
  Company Number: US-MYLANLABS-2024M1108211

PATIENT
  Age: 17 Year
  Sex: Male

DRUGS (18)
  1. CLONIDINE [Suspect]
     Active Substance: CLONIDINE
     Indication: Dystonia
     Dosage: UNK
     Route: 062
  2. CLONIDINE [Suspect]
     Active Substance: CLONIDINE
     Dosage: UNK (DOSE WAS INCREASED TO 0.6MG PER DAY BY TRANSDERMAL PATCH..)
     Route: 062
  3. CLONIDINE [Suspect]
     Active Substance: CLONIDINE
     Dosage: 100 MICROGRAM, Q6H (AS NEEDED)
     Route: 065
  4. CARBIDOPA\LEVODOPA [Suspect]
     Active Substance: CARBIDOPA\LEVODOPA
     Indication: Dystonia
     Dosage: UNK
     Route: 065
  5. DEXMEDETOMIDINE [Suspect]
     Active Substance: DEXMEDETOMIDINE
     Indication: Dystonia
     Dosage: UNK (IV DEXMEDETOMIDINE INFUSION AT 0.5 ?G ? KG?1 ? H?1, ..)
     Route: 042
  6. TRIHEXYPHENIDYL [Suspect]
     Active Substance: TRIHEXYPHENIDYL
     Indication: Dystonia
     Dosage: 4 MILLIGRAM, TID (BY JEJUNOSTOMY TUBE)
     Route: 065
  7. ACETAMINOPHEN [Concomitant]
     Active Substance: ACETAMINOPHEN
     Indication: Supportive care
     Dosage: 480 MILLIGRAM, Q6H (BY JEJUNOSTOMY TUBE)
     Route: 065
  8. CANNABIDIOL [Concomitant]
     Active Substance: CANNABIDIOL
     Indication: Muscle spasticity
     Dosage: 68 MILLIGRAM BID, (BY JEJUNOSTOMY TUBE)
     Route: 065
  9. CYCLOBENZAPRINE [Concomitant]
     Active Substance: CYCLOBENZAPRINE
     Indication: Muscle spasticity
     Dosage: 10 MILLIGRAM, Q8H (BY JEJUNOSTOMY TUBE)
     Route: 065
  10. DANTROLENE [Concomitant]
     Active Substance: DANTROLENE
     Indication: Dystonia
     Dosage: 70 MILLIGRAM, Q6H (BY JEJUNOSTOMY TUBE)
     Route: 065
  11. DIAZEPAM [Concomitant]
     Active Substance: DIAZEPAM
     Indication: Dystonia
     Dosage: 5 MILLIGRAM, Q6H
     Route: 042
  12. GABAPENTIN [Concomitant]
     Active Substance: GABAPENTIN
     Indication: Dystonia
     Dosage: 800 MILLIGRAM, TID ( BY JEJUNOSTOMY TUBE)
     Route: 065
  13. HYDROMORPHONE [Concomitant]
     Active Substance: HYDROMORPHONE
     Indication: Pain management
     Dosage: UNK
     Route: 042
  14. MELATONIN [Concomitant]
     Active Substance: MELATONIN
     Indication: Sleep disorder
     Dosage: 6 MILLIGRAM, HS (AT BEDTIME; BY JEJUNOSTOMY TUBE)
     Route: 065
  15. MORPHINE [Concomitant]
     Active Substance: MORPHINE
     Indication: Pain management
     Dosage: 1 MILLIGRAM
     Route: 042
  16. RISPERIDONE [Concomitant]
     Active Substance: RISPERIDONE
     Indication: Agitation
     Dosage: 0.5 MILLIGRAM (BY JEJUNOSTOMY TUBE)
     Route: 065
  17. RISPERIDONE [Concomitant]
     Active Substance: RISPERIDONE
     Indication: Delirium
  18. OXYCODONE [Concomitant]
     Active Substance: OXYCODONE
     Indication: Dystonia
     Dosage: 2.5 MILLIGRAM, Q8H (BY JEJUNOSTOMY TUBE)
     Route: 065

REACTIONS (3)
  - Drug ineffective for unapproved indication [Unknown]
  - Off label use [Unknown]
  - Lethargy [Recovering/Resolving]
